FAERS Safety Report 5114984-X (Version None)
Quarter: 2006Q3

REPORT INFORMATION
  Report Type: 
  Country: None (occurrence: None)
  Receive Date: 20060926
  Receipt Date: 20060915
  Transmission Date: 20061208
  Serious: Yes (Hospitalization, Disabling, Other)
  Sender: FDA-Public Use
  Company Number: US-MERCK-0609USA03205

PATIENT
  Age: 53 Year
  Sex: Female
  Weight: 38 kg

DRUGS (30)
  1. ACTONEL [Suspect]
     Indication: OSTEOPOROSIS
     Route: 048
     Dates: start: 20010101, end: 20031001
  2. ACTONEL [Suspect]
     Route: 048
     Dates: start: 20050401, end: 20060601
  3. DIDRONEL [Suspect]
     Indication: OSTEOPOROSIS
     Route: 048
     Dates: start: 20000101, end: 20010101
  4. FOSAMAX [Suspect]
     Indication: OSTEOPOROSIS
     Route: 048
     Dates: start: 19960101, end: 19980101
  5. NYSTATIN [Concomitant]
     Route: 065
  6. PERI-COLACE [Concomitant]
     Route: 065
     Dates: start: 19990101
  7. FERROUS SULFATE [Concomitant]
     Route: 065
     Dates: start: 20040101
  8. CALCIUM (UNSPECIFIED) [Concomitant]
     Route: 065
     Dates: start: 20010101
  9. VITAMINS (UNSPECIFIED) [Concomitant]
     Route: 065
  10. NORTRIPTYLINE [Concomitant]
     Route: 065
  11. LIDOCAINE [Concomitant]
     Route: 065
  12. ZOFRAN [Concomitant]
     Route: 065
  13. PHENERGAN (DIBROMPROPAMIDINE ISETHIONATE (+) PROMETHAZINE) [Concomitant]
     Route: 065
  14. PHENERGAN (DIBROMPROPAMIDINE ISETHIONATE (+) PROMETHAZINE) [Concomitant]
     Route: 065
  15. PLAQUENIL [Concomitant]
     Route: 065
     Dates: start: 19820101
  16. TEMAZEPAM [Concomitant]
     Route: 065
  17. OXYCODONE [Concomitant]
     Route: 065
     Dates: start: 19940101
  18. ATIVAN [Concomitant]
     Route: 065
     Dates: start: 20040101
  19. REGLAN [Concomitant]
     Route: 065
  20. ZOLOFT [Concomitant]
     Route: 065
     Dates: start: 20020101
  21. RITALIN [Concomitant]
     Route: 065
     Dates: start: 19990101
  22. LEVOTHROID [Concomitant]
     Route: 065
     Dates: start: 19780101
  23. PROGRAF [Concomitant]
     Route: 065
     Dates: start: 19980101
  24. PREDNISONE [Concomitant]
     Route: 065
  25. GANCICLOVIR [Concomitant]
     Route: 065
  26. PREVACID [Concomitant]
     Route: 065
     Dates: start: 19990101
  27. BENADRYL [Concomitant]
     Route: 065
  28. FLEET (SODIUM PHOSPHATE, DIBASIC (+) SODIUM PHOSPHATE, MONOBASIC) [Concomitant]
     Route: 065
  29. PERIDEX [Concomitant]
     Route: 065
  30. LIDODERM [Concomitant]
     Route: 065

REACTIONS (14)
  - ADVERSE EVENT [None]
  - ANAEMIA [None]
  - CYTOMEGALOVIRUS CHORIORETINITIS [None]
  - CYTOMEGALOVIRUS OESOPHAGITIS [None]
  - GASTROOESOPHAGEAL REFLUX DISEASE [None]
  - HEPATIC CIRRHOSIS [None]
  - JAW DISORDER [None]
  - LYMPHOPROLIFERATIVE DISORDER [None]
  - MENINGITIS [None]
  - NEPHROLITHIASIS [None]
  - OSTEONECROSIS [None]
  - RENAL FAILURE [None]
  - TOOTH DISCOLOURATION [None]
  - TOOTH DISORDER [None]
